FAERS Safety Report 18150273 (Version 1)
Quarter: 2020Q3

REPORT INFORMATION
  Report Type: Spontaneous
  Country: GB (occurrence: GB)
  Receive Date: 20200814
  Receipt Date: 20200814
  Transmission Date: 20201103
  Serious: Yes (Hospitalization)
  Sender: FDA-Public Use
  Company Number: GB-MYLANLABS-2020M1070420

PATIENT
  Age: 61 Year
  Sex: Female

DRUGS (1)
  1. TAMOXIFEN [Suspect]
     Active Substance: TAMOXIFEN
     Indication: BREAST CANCER
     Dosage: 1 MILLIGRAM
     Dates: start: 20200123, end: 20200605

REACTIONS (3)
  - Deep vein thrombosis [Recovering/Resolving]
  - Peripheral swelling [Unknown]
  - Hot flush [Unknown]

NARRATIVE: CASE EVENT DATE: 20200605
